FAERS Safety Report 9052680 (Version 1)
Quarter: 2013Q1

REPORT INFORMATION
  Report Type: Spontaneous
  Country: US (occurrence: US)
  Receive Date: 20130207
  Receipt Date: 20130207
  Transmission Date: 20140127
  Serious: No
  Sender: FDA-Public Use
  Company Number: US-PFIZER INC-2013050166

PATIENT
  Age: 64 Year
  Sex: Female
  Weight: 81 kg

DRUGS (5)
  1. ADVIL [Suspect]
     Indication: HEADACHE
     Dosage: 200 MG, AS NEEDED
     Route: 048
  2. ADVIL [Suspect]
     Dosage: UNK, AS NEEDED
     Route: 048
  3. TYLENOL [Suspect]
     Indication: HEADACHE
     Dosage: UNK
  4. COZAAR [Concomitant]
     Indication: HYPERTENSION
     Dosage: 50 MG, DAILY
  5. NORVASC [Concomitant]
     Indication: HYPERTENSION
     Dosage: 5 MG, DAILY

REACTIONS (3)
  - Poor quality drug administered [Unknown]
  - Drug ineffective [Unknown]
  - Tablet physical issue [Unknown]
